FAERS Safety Report 21473279 (Version 2)
Quarter: 2022Q4

REPORT INFORMATION
  Report Type: Report from Study
  Country: CZ (occurrence: CZ)
  Receive Date: 20221018
  Receipt Date: 20221126
  Transmission Date: 20230112
  Serious: Yes (Death)
  Sender: FDA-Public Use
  Company Number: CZ-ABBVIE-4164763

PATIENT
  Age: 77 Year
  Sex: Female
  Weight: 63 kg

DRUGS (10)
  1. CARBIDOPA\LEVODOPA [Suspect]
     Active Substance: CARBIDOPA\LEVODOPA
     Indication: Parkinson^s disease
     Dosage: MORNING DOSE 12 ML, CONTINUOUS DOSE 3.8 ML/HOUR, EXTRA DOSE 0
     Route: 050
     Dates: start: 20170710, end: 20221013
  2. CARBIDOPA\LEVODOPA [Suspect]
     Active Substance: CARBIDOPA\LEVODOPA
  3. NIMVASTID [Concomitant]
     Indication: Prophylaxis
     Route: 048
     Dates: start: 20200219, end: 20221013
  4. MEMANTINE HYDROCHLORIDE [Concomitant]
     Active Substance: MEMANTINE HYDROCHLORIDE
     Indication: Psychiatric disorder prophylaxis
     Dosage: 1-0-0
     Route: 048
     Dates: start: 20220303, end: 20221013
  5. OLANZAPINE [Concomitant]
     Active Substance: OLANZAPINE
     Indication: Psychiatric disorder prophylaxis
     Dosage: 0-0-0-1/2
     Route: 048
     Dates: start: 20210513, end: 20221013
  6. FOLIC ACID [Concomitant]
     Active Substance: FOLIC ACID
     Indication: Psychiatric disorder prophylaxis
     Dosage: 1-0-0
     Route: 048
     Dates: start: 20170906, end: 20221013
  7. CALCIUM PANTOTHENATE\NIACINAMIDE\PYRIDOXINE HYDROCHLORIDE\RIBOFLAVIN\T [Concomitant]
     Active Substance: CALCIUM PANTOTHENATE\NIACINAMIDE\PYRIDOXINE HYDROCHLORIDE\RIBOFLAVIN\THIAMINE HYDROCHLORIDE
     Indication: Prophylaxis
     Dosage: 1-0-0
     Route: 048
     Dates: start: 20170906, end: 20221013
  8. QUETIAPINE FUMARATE [Concomitant]
     Active Substance: QUETIAPINE FUMARATE
     Indication: Prophylaxis
     Route: 048
     Dates: start: 20170803, end: 20221013
  9. BENSERAZIDE HYDROCHLORIDE\LEVODOPA [Concomitant]
     Active Substance: BENSERAZIDE HYDROCHLORIDE\LEVODOPA
     Indication: Parkinson^s disease
     Dosage: 0-0-0-1
     Route: 048
     Dates: start: 20170906, end: 20221013
  10. ESCITALOPRAM OXALATE [Concomitant]
     Active Substance: ESCITALOPRAM OXALATE
     Indication: Psychiatric disorder prophylaxis
     Route: 048
     Dates: start: 20220125, end: 20221013

REACTIONS (1)
  - Death [Fatal]

NARRATIVE: CASE EVENT DATE: 20221013
